FAERS Safety Report 19655846 (Version 1)
Quarter: 2021Q3

REPORT INFORMATION
  Report Type: Spontaneous
  Country: US (occurrence: US)
  Receive Date: 20210803
  Receipt Date: 20210803
  Transmission Date: 20211014
  Serious: Yes (Hospitalization)
  Sender: FDA-Public Use
  Company Number: None

PATIENT
  Age: 30 Year
  Sex: Male
  Weight: 112.9 kg

DRUGS (6)
  1. CYCLOPHOSPHAMIDE. [Suspect]
     Active Substance: CYCLOPHOSPHAMIDE
     Dates: end: 20210630
  2. CYTARABINE. [Suspect]
     Active Substance: CYTARABINE
     Dates: end: 20210710
  3. METHOTREXATE. [Suspect]
     Active Substance: METHOTREXATE
     Dates: end: 20210623
  4. ONCASPAR [Suspect]
     Active Substance: PEGASPARGASE
     Dates: end: 20210716
  5. MERCAPTOPURINE. [Suspect]
     Active Substance: MERCAPTOPURINE
     Dates: end: 20210713
  6. VINCRISTINE SULFATE. [Suspect]
     Active Substance: VINCRISTINE SULFATE
     Dates: end: 20210721

REACTIONS (15)
  - Abdominal pain [None]
  - Escherichia infection [None]
  - Clostridium bacteraemia [None]
  - Cough [None]
  - Nausea [None]
  - Chills [None]
  - Diarrhoea [None]
  - Sepsis [None]
  - Clostridium difficile colitis [None]
  - Rhinovirus infection [None]
  - Febrile neutropenia [None]
  - Vomiting [None]
  - Arthralgia [None]
  - Colitis [None]
  - Pancytopenia [None]

NARRATIVE: CASE EVENT DATE: 20210725
